FAERS Safety Report 8004934-0 (Version None)
Quarter: 2011Q4

REPORT INFORMATION
  Report Type: 
  Country: None (occurrence: None)
  Receive Date: 20111223
  Receipt Date: 20111220
  Transmission Date: 20120403
  Serious: Yes (Other)
  Sender: FDA-Public Use
  Company Number: TR-CUBIST-2011S1000900

PATIENT
  Age: 33 Year
  Weight: 90 kg

DRUGS (6)
  1. CUBICIN [Suspect]
     Route: 042
     Dates: start: 20111201, end: 20111216
  2. CUBICIN [Suspect]
     Indication: OSTEOMYELITIS
     Route: 042
     Dates: start: 20111201, end: 20111216
  3. CUBICIN [Suspect]
     Route: 042
     Dates: start: 20111201, end: 20111216
  4. FRAXIPARIN /01437702/ [Concomitant]
     Indication: PRODUCT USED FOR UNKNOWN INDICATION
     Dosage: DOSE UNIT:U UNKNOWN
     Route: 065
  5. CUBICIN [Suspect]
     Indication: BACTERAEMIA
     Route: 042
     Dates: start: 20111201, end: 20111216
  6. COUMADIN [Concomitant]
     Indication: PRODUCT USED FOR UNKNOWN INDICATION
     Route: 065

REACTIONS (1)
  - HEPATOTOXICITY [None]
